FAERS Safety Report 17238995 (Version 1)
Quarter: 2020Q1

REPORT INFORMATION
  Report Type: Spontaneous
  Country: US (occurrence: US)
  Receive Date: 20200104
  Receipt Date: 20200104
  Transmission Date: 20200409
  Serious: Yes (Disabling)
  Sender: FDA-Public Use
  Company Number: None

PATIENT
  Age: 24 Year
  Sex: Female
  Weight: 145.15 kg

DRUGS (2)
  1. PARAGARD T 380A [Suspect]
     Active Substance: COPPER
     Dates: start: 20191009
  2. IRON SUPPLEMENT [Concomitant]
     Active Substance: IRON

REACTIONS (8)
  - Amnesia [None]
  - Diplopia [None]
  - Night blindness [None]
  - Headache [None]
  - Nausea [None]
  - Hallucination [None]
  - Vision blurred [None]
  - Tinnitus [None]

NARRATIVE: CASE EVENT DATE: 20191115
